FAERS Safety Report 5085323-8 (Version None)
Quarter: 2006Q3

REPORT INFORMATION
  Report Type: 
  Country: None (occurrence: None)
  Receive Date: 20060822
  Receipt Date: 20060731
  Transmission Date: 20061208
  Serious: Yes (Hospitalization)
  Sender: FDA-Public Use
  Company Number: DK-NOVOPROD-256234

PATIENT

DRUGS (1)
  1. ACTRAPID [Suspect]
     Indication: DIABETES MELLITUS

REACTIONS (5)
  - DRUG DISPENSING ERROR [None]
  - HYPOGLYCAEMIA [None]
  - INCORRECT DOSE ADMINISTERED [None]
  - MEDICATION ERROR [None]
  - RESPIRATORY RATE INCREASED [None]
